FAERS Safety Report 9828503 (Version 1)
Quarter: 2013Q4

REPORT INFORMATION
  Report Type: Spontaneous
  Country: US (occurrence: None)
  Receive Date: 20131120
  Receipt Date: 20131120
  Transmission Date: 20140711
  Serious: No
  Sender: FDA-Public Use
  Company Number: 1000050052

PATIENT
  Age: 52 Year
  Sex: Female

DRUGS (4)
  1. VIIBRYD [Suspect]
     Indication: DEPRESSION
     Dosage: 10 MG (10 MG, 1 IN 1 D), ORAL
     Route: 048
     Dates: start: 201302, end: 2013
  2. LAMOTRIGINE (LAMOTRIGINE) (LAMOTRIGINE) [Concomitant]
  3. BUPROPION (BUPROPION) (BUPROPION) [Concomitant]
  4. CLONAZEPAM (CLONAZEPAM) (CLONAZEPAM) [Concomitant]

REACTIONS (5)
  - Diarrhoea [None]
  - Heart rate irregular [None]
  - Palpitations [None]
  - Chest discomfort [None]
  - Dyspepsia [None]
